FAERS Safety Report 18575159 (Version 3)
Quarter: 2021Q1

REPORT INFORMATION
  Report Type: Report from Study
  Country: US (occurrence: US)
  Receive Date: 20201203
  Receipt Date: 20210323
  Transmission Date: 20210419
  Serious: No
  Sender: FDA-Public Use
  Company Number: NVSC2020US314893

PATIENT
  Age: 29 Year
  Sex: Female

DRUGS (1)
  1. COSENTYX [Suspect]
     Active Substance: SECUKINUMAB
     Indication: PSORIASIS
     Dosage: 300 MG, QW FOR 5 WEEKS, THEN Q4W
     Route: 058
     Dates: start: 20200911

REACTIONS (6)
  - Onychomadesis [Unknown]
  - Alopecia [Recovering/Resolving]
  - Skin plaque [Recovering/Resolving]
  - Psoriasis [Unknown]
  - Skin infection [Unknown]
  - Product dose omission issue [Unknown]

NARRATIVE: CASE EVENT DATE: 20210125
